FAERS Safety Report 14856627 (Version 2)
Quarter: 2019Q2

REPORT INFORMATION
  Report Type: Spontaneous
  Country: US (occurrence: US)
  Receive Date: 20180507
  Receipt Date: 20190509
  Transmission Date: 20190711
  Serious: No
  Sender: FDA-Public Use
  Company Number: US-ROCHE-2079957

PATIENT
  Age: 61 Year
  Sex: Male

DRUGS (2)
  1. ESBRIET [Suspect]
     Active Substance: PIRFENIDONE
     Route: 048
     Dates: start: 20180131
  2. ESBRIET [Suspect]
     Active Substance: PIRFENIDONE
     Indication: IDIOPATHIC PULMONARY FIBROSIS
     Route: 048
     Dates: start: 20180201, end: 20180222

REACTIONS (8)
  - Diarrhoea [Unknown]
  - Insomnia [Unknown]
  - Blister [Unknown]
  - Sleep disorder [Unknown]
  - Photosensitivity reaction [Unknown]
  - Pruritus [Unknown]
  - Nightmare [Unknown]
  - Rash pruritic [Unknown]

NARRATIVE: CASE EVENT DATE: 20180201
